FAERS Safety Report 13656561 (Version 2)
Quarter: 2017Q4

REPORT INFORMATION
  Report Type: Spontaneous
  Country: FR (occurrence: FR)
  Receive Date: 20170615
  Receipt Date: 20171127
  Transmission Date: 20180320
  Serious: Yes (Death, Hospitalization, Other)
  Sender: FDA-Public Use
  Company Number: FR-ELI_LILLY_AND_COMPANY-FR201706004575

PATIENT
  Age: 65 Year
  Sex: Female
  Weight: 115 kg

DRUGS (13)
  1. DIFFU-K [Concomitant]
     Active Substance: POTASSIUM CHLORIDE
     Indication: PRODUCT USED FOR UNKNOWN INDICATION
     Dosage: 600 MG, TID
     Route: 065
  2. ESOMEPRAZOLE [Concomitant]
     Active Substance: ESOMEPRAZOLE
     Indication: PRODUCT USED FOR UNKNOWN INDICATION
     Dosage: 40 MG, UNKNOWN
     Route: 065
  3. GANFORT [Concomitant]
     Active Substance: BIMATOPROST\TIMOLOL
     Indication: PRODUCT USED FOR UNKNOWN INDICATION
     Dosage: 1 GTT, DAILY
     Route: 047
  4. HUMAN INSULIN (RDNA ORIGIN) REGULAR [Suspect]
     Active Substance: INSULIN HUMAN
     Dosage: 15 IU, DAILY (AT LUNCH)
     Route: 058
     Dates: start: 201505
  5. HUMAN INSULIN (RDNA ORIGIN) REGULAR [Suspect]
     Active Substance: INSULIN HUMAN
     Dosage: 15 IU, DAILY (AT DINNER)
     Route: 058
     Dates: start: 201505
  6. LASILIX                            /00032601/ [Concomitant]
     Active Substance: FUROSEMIDE
     Indication: PRODUCT USED FOR UNKNOWN INDICATION
     Dosage: 125 MG, UNKNOWN
     Route: 065
  7. SALBUTAMOL [Concomitant]
     Active Substance: ALBUTEROL
     Indication: PRODUCT USED FOR UNKNOWN INDICATION
     Dosage: 3 INHALATION, DAILY
     Route: 055
  8. ATROVENT [Concomitant]
     Active Substance: IPRATROPIUM BROMIDE
     Indication: PRODUCT USED FOR UNKNOWN INDICATION
     Dosage: 3 INHALATION, DAILY
     Route: 055
  9. HUMAN INSULIN (RDNA ORIGIN) REGULAR [Suspect]
     Active Substance: INSULIN HUMAN
     Indication: TYPE 1 DIABETES MELLITUS
     Dosage: 15 IU, EACH MORNING
     Route: 058
     Dates: start: 201505
  10. KARDEGIC [Concomitant]
     Active Substance: ASPIRIN DL-LYSINE
     Indication: PRODUCT USED FOR UNKNOWN INDICATION
     Dosage: 100 MG, UNKNOWN
     Route: 065
  11. HUMAN INSULIN (RDNA ORIGIN) REGULAR [Suspect]
     Active Substance: INSULIN HUMAN
     Dosage: 22.6 IU/DAY CONTINUOSLY
     Dates: start: 201505
  12. ATORVASTATIN [Concomitant]
     Active Substance: ATORVASTATIN
     Indication: PRODUCT USED FOR UNKNOWN INDICATION
     Dosage: 10 MG, UNKNOWN
     Route: 065
  13. SPASFON                            /00765801/ [Concomitant]
     Active Substance: PHLOROGLUCINOL\1,3,5-TRIMETHOXYBENZENE
     Indication: PRODUCT USED FOR UNKNOWN INDICATION
     Dosage: 80 MG, UNKNOWN
     Route: 065

REACTIONS (6)
  - Tracheostomy malfunction [Fatal]
  - Glycosylated haemoglobin increased [Unknown]
  - Cardio-respiratory arrest [Fatal]
  - Joint ankylosis [Unknown]
  - Respiratory failure [Not Recovered/Not Resolved]
  - Pneumonia [Unknown]

NARRATIVE: CASE EVENT DATE: 201612
